FAERS Safety Report 14458059 (Version 3)
Quarter: 2020Q2

REPORT INFORMATION
  Report Type: Spontaneous
  Country: US (occurrence: US)
  Receive Date: 20180130
  Receipt Date: 20200402
  Transmission Date: 20200713
  Serious: Yes (Hospitalization, Other)
  Sender: FDA-Public Use
  Company Number: US-PFIZER INC-2018034072

PATIENT
  Age: 72 Year
  Sex: Female
  Weight: 58 kg

DRUGS (16)
  1. MICAFUNGIN. [Suspect]
     Active Substance: MICAFUNGIN SODIUM
     Dosage: 100 MG, 1X/DAY (ON DAY 30 TO DAY 34)
  2. HYDROCHLOROTHIAZIDE W/TRIAMTERENE [Concomitant]
     Active Substance: HYDROCHLOROTHIAZIDE\TRIAMTERENE
     Dosage: UNK
  3. ISOSORBIDE MONONITRATE. [Concomitant]
     Active Substance: ISOSORBIDE MONONITRATE
     Dosage: UNK
  4. LIDOCAINE. [Concomitant]
     Active Substance: LIDOCAINE
     Dosage: UNK(MUCOUS MEMBRANE SOLUTION)
  5. CYTARABINE. [Suspect]
     Active Substance: CYTARABINE
     Dosage: 2600 MG (1566 MG/M2), CYCLIC (ON DAY 22)
     Route: 042
  6. METOPROLOL SUCCINATE. [Concomitant]
     Active Substance: METOPROLOL SUCCINATE
     Dosage: UNK
  7. POSACONAZOLE [Suspect]
     Active Substance: POSACONAZOLE
     Dosage: 300 MG, 1X/DAY(GIVEN FROM HOSPITAL DAYS 11 TO 26)A TOTAL OF 16 DOSES
     Route: 048
  8. ATORVASTATIN [Concomitant]
     Active Substance: ATORVASTATIN
     Dosage: UNK
  9. CYTARABINE. [Suspect]
     Active Substance: CYTARABINE
     Dosage: UNK 9 OF 12 PLANNED DOSES
  10. LEVOTHYROXINE. [Concomitant]
     Active Substance: LEVOTHYROXINE
     Dosage: UNK
  11. FENTANYL. [Concomitant]
     Active Substance: FENTANYL
     Dosage: UNK(A TOTAL OF DOSE 1600 MCG/BETWEEN DAYS 27 AND 30)
     Route: 042
  12. MIDAZOLAM. [Concomitant]
     Active Substance: MIDAZOLAM
     Dosage: 6 MG, UNK(ON DAYS 27 TO 29)
     Route: 042
  13. CYTARABINE. [Suspect]
     Active Substance: CYTARABINE
     Indication: ACUTE MYELOID LEUKAEMIA
     Dosage: 170 MG (100 MG/M2), CYCLIC (7 + 3 INDUCTION CHEMOTHERAPY/INFUSED OVER 24 HOURS)HIGH DOSE
     Route: 042
  14. IDARUBICIN [Concomitant]
     Active Substance: IDARUBICIN
     Indication: ACUTE MYELOID LEUKAEMIA
     Dosage: 20 MG (12 MG/M2), CYCLIC
  15. CYTARABINE. [Suspect]
     Active Substance: CYTARABINE
     Dosage: UNK(DOSE WAS EMPIRICALLY REDUCED BY 50%)
  16. CEFEPIME [Concomitant]
     Active Substance: CEFEPIME HYDROCHLORIDE
     Indication: EVIDENCE BASED TREATMENT
     Dosage: UNK

REACTIONS (1)
  - Hepatotoxicity [Unknown]
